FAERS Safety Report 9919500 (Version 3)
Quarter: 2014Q1

REPORT INFORMATION
  Report Type: Spontaneous
  Country: US (occurrence: US)
  Receive Date: 20140224
  Receipt Date: 20140327
  Transmission Date: 20141002
  Serious: Yes (Hospitalization)
  Sender: FDA-Public Use
  Company Number: US-ACTELION-A-US2014-94954

PATIENT
  Age: 20 Year
  Sex: Male

DRUGS (2)
  1. OPSUMIT [Suspect]
     Indication: PULMONARY ARTERIAL HYPERTENSION
     Dosage: 10 MG, QD
     Route: 048
     Dates: start: 201311
  2. REVATIO [Concomitant]
     Dosage: 20 MG, UNK

REACTIONS (2)
  - Gastroenteritis viral [Recovered/Resolved]
  - Drug withdrawal syndrome [Recovered/Resolved]
